FAERS Safety Report 6391600-0 (Version None)
Quarter: 2009Q4

REPORT INFORMATION
  Report Type: 
  Country: None (occurrence: None)
  Receive Date: 20091007
  Receipt Date: 20090930
  Transmission Date: 20100525
  Serious: No
  Sender: FDA-Public Use
  Company Number: US-B.I. PHARMACEUTICALS,INC./RIDGEFIELD-2009-BP-11483BP

PATIENT
  Sex: Male

DRUGS (3)
  1. SPIRIVA [Suspect]
     Dates: start: 20090301
  2. ARICEPT [Suspect]
     Indication: DEMENTIA ALZHEIMER'S TYPE
     Dosage: 10 MG
     Route: 048
     Dates: end: 20090401
  3. ARICEPT [Concomitant]
     Dosage: 10 MG
     Route: 048
     Dates: start: 20090601

REACTIONS (5)
  - AGITATION [None]
  - ANGER [None]
  - CONFUSIONAL STATE [None]
  - NERVOUSNESS [None]
  - SOMNOLENCE [None]
